FAERS Safety Report 6039721-6 (Version None)
Quarter: 2009Q1

REPORT INFORMATION
  Report Type: 
  Country: None (occurrence: None)
  Receive Date: 20090116
  Receipt Date: 20090109
  Transmission Date: 20090719
  Serious: Yes (Hospitalization)
  Sender: FDA-Public Use
  Company Number: PHHY2009AR00961

PATIENT
  Sex: Male

DRUGS (3)
  1. TASIGNA [Suspect]
     Indication: CHRONIC MYELOID LEUKAEMIA
     Route: 048
  2. CLONAZEPAM [Concomitant]
  3. ACETAMINOPHEN [Concomitant]
     Dosage: OCCASSIONALLY

REACTIONS (3)
  - BRONCHOSPASM [None]
  - PRURITUS [None]
  - SKIN REACTION [None]
